FAERS Safety Report 24704837 (Version 1)
Quarter: 2024Q4

REPORT INFORMATION
  Report Type: Report from Study
  Country: BR (occurrence: BR)
  Receive Date: 20241206
  Receipt Date: 20241206
  Transmission Date: 20250115
  Serious: Yes (Other)
  Sender: JOHNSON AND JOHNSON
  Company Number: BR-JNJFOC-20241162050

PATIENT
  Age: 54 Year
  Sex: Female
  Weight: 81 kg

DRUGS (2)
  1. GOLIMUMAB [Suspect]
     Active Substance: GOLIMUMAB
     Indication: Rheumatoid arthritis
     Route: 058
  2. GOLIMUMAB [Suspect]
     Active Substance: GOLIMUMAB

REACTIONS (4)
  - Rheumatoid arthritis [Unknown]
  - Product dose omission issue [Unknown]
  - Sinusitis [Unknown]
  - Meniscus injury [Unknown]
